FAERS Safety Report 15659161 (Version 2)
Quarter: 2018Q4

REPORT INFORMATION
  Report Type: Spontaneous
  Country: GB (occurrence: GB)
  Receive Date: 20181127
  Receipt Date: 20181206
  Transmission Date: 20190205
  Serious: Yes (Other)
  Sender: FDA-Public Use
  Company Number: GB-BIOGEN-2018BI00663218

PATIENT
  Age: 28 Year
  Sex: Female
  Weight: 80 kg

DRUGS (1)
  1. TECFIDERA [Suspect]
     Active Substance: DIMETHYL FUMARATE
     Indication: MULTIPLE SCLEROSIS
     Dosage: MAINTENANCE DOSE
     Route: 048

REACTIONS (2)
  - Papilloma viral infection [Unknown]
  - Cervical dysplasia [Recovered/Resolved]

NARRATIVE: CASE EVENT DATE: 2015
